APPROVED DRUG PRODUCT: LEVOCARNITINE SF
Active Ingredient: LEVOCARNITINE
Strength: 1GM/10ML
Dosage Form/Route: SOLUTION;ORAL
Application: A211676 | Product #002 | TE Code: AA
Applicant: NOVITIUM PHARMA LLC
Approved: Aug 14, 2019 | RLD: No | RS: No | Type: RX